FAERS Safety Report 9315496 (Version 3)
Quarter: 2013Q3

REPORT INFORMATION
  Report Type: Spontaneous
  Country: JP (occurrence: JP)
  Receive Date: 20130529
  Receipt Date: 20130815
  Transmission Date: 20140515
  Serious: Yes (Hospitalization)
  Sender: FDA-Public Use
  Company Number: JP-B.I. PHARMACEUTICALS,INC./RIDGEFIELD-2013-BI-15043NB

PATIENT
  Age: 69 Year
  Sex: Male
  Weight: 48.95 kg

DRUGS (3)
  1. PRAZAXA [Suspect]
     Indication: ATRIAL FIBRILLATION
     Dosage: 220 MG
     Route: 048
     Dates: start: 201110, end: 20130527
  2. SHAKUYAKUKANZOTO [Suspect]
     Indication: HICCUPS
     Dosage: 7.5 G
     Route: 048
     Dates: start: 20130420, end: 20130425
  3. WINTERMIN [Suspect]
     Indication: HICCUPS
     Dosage: 75 G
     Route: 048
     Dates: start: 20130419, end: 20130426

REACTIONS (2)
  - Cholestasis [Not Recovered/Not Resolved]
  - Hiccups [Unknown]
